FAERS Safety Report 10053546 (Version 1)
Quarter: 2014Q2

REPORT INFORMATION
  Report Type: Spontaneous
  Country: US (occurrence: US)
  Receive Date: 20140402
  Receipt Date: 20140402
  Transmission Date: 20141212
  Serious: No
  Sender: FDA-Public Use
  Company Number: US-PFIZER INC-2014090333

PATIENT
  Age: 71 Year
  Sex: Female
  Weight: 77.1 kg

DRUGS (2)
  1. LYRICA [Suspect]
     Indication: COMPLEX REGIONAL PAIN SYNDROME
     Dosage: 25 MG, 3X/DAY
     Dates: start: 201403
  2. ATENOLOL [Concomitant]
     Dosage: 25 MG, UNK

REACTIONS (1)
  - Hypersensitivity [Unknown]
